FAERS Safety Report 6479871-3 (Version None)
Quarter: 2009Q4

REPORT INFORMATION
  Report Type: 
  Country: None (occurrence: None)
  Receive Date: 20091208
  Receipt Date: 20091130
  Transmission Date: 20100525
  Serious: Yes (Hospitalization)
  Sender: FDA-Public Use
  Company Number: FR-ROCHE-671871

PATIENT
  Sex: Female

DRUGS (7)
  1. FUZEON [Suspect]
     Indication: ANTIRETROVIRAL THERAPY
     Route: 058
     Dates: start: 20060610, end: 20090917
  2. APTIVUS [Suspect]
     Indication: ANTIRETROVIRAL THERAPY
     Route: 048
     Dates: start: 20060610
  3. APTIVUS [Suspect]
     Dosage: DOSE REDUCED
     Route: 048
     Dates: start: 20090914, end: 20090917
  4. VIREAD [Suspect]
     Indication: ANTIRETROVIRAL THERAPY
     Route: 048
  5. VIREAD [Suspect]
     Route: 048
     Dates: start: 20080401, end: 20090916
  6. NORVIR [Concomitant]
     Dates: start: 20001201
  7. KIVEXA [Concomitant]

REACTIONS (3)
  - GAMMA-GLUTAMYLTRANSFERASE INCREASED [None]
  - TRANSAMINASES INCREASED [None]
  - VOMITING [None]
